FAERS Safety Report 24940414 (Version 2)
Quarter: 2025Q1

REPORT INFORMATION
  Report Type: Spontaneous
  Country: CA (occurrence: CA)
  Receive Date: 20250207
  Receipt Date: 20250228
  Transmission Date: 20250408
  Serious: Yes (Death, Hospitalization, Other)
  Sender: CELLTRION
  Company Number: CA-CELLTRION INC.-2025CA002958

PATIENT

DRUGS (2)
  1. STEQEYMA [Suspect]
     Active Substance: USTEKINUMAB-STBA
     Indication: Crohn^s disease
     Route: 042
     Dates: start: 20241203
  2. STEQEYMA [Suspect]
     Active Substance: USTEKINUMAB-STBA
     Route: 058

REACTIONS (2)
  - Death [Fatal]
  - Crohn^s disease [Unknown]

NARRATIVE: CASE EVENT DATE: 20250219
